FAERS Safety Report 24212437 (Version 2)
Quarter: 2024Q3

REPORT INFORMATION
  Report Type: Report from Study
  Country: US (occurrence: US)
  Receive Date: 20240815
  Receipt Date: 20240822
  Transmission Date: 20241017
  Serious: No
  Sender: ALEXION PHARMACEUTICALS
  Company Number: US-ALXN-202408USA000368US

PATIENT
  Age: 47 Year
  Sex: Female

DRUGS (1)
  1. STRENSIQ [Suspect]
     Active Substance: ASFOTASE ALFA
     Indication: Hypophosphatasia
     Dosage: 136 MILLIGRAM, TIW
     Route: 058
     Dates: start: 20240710

REACTIONS (6)
  - Injection site pain [Unknown]
  - Injection site erythema [Recovering/Resolving]
  - Injection site haemorrhage [Unknown]
  - Injection site swelling [Recovering/Resolving]
  - Injection site pruritus [Unknown]
  - Injection site warmth [Unknown]

NARRATIVE: CASE EVENT DATE: 20240801
